FAERS Safety Report 10412870 (Version 4)
Quarter: 2014Q4

REPORT INFORMATION
  Report Type: Report from Study
  Country: US (occurrence: US)
  Receive Date: 20140827
  Receipt Date: 20141218
  Transmission Date: 20150528
  Serious: Yes (Other)
  Sender: FDA-Public Use
  Company Number: US-ACTELION-A-US2014-104062

PATIENT
  Age: 63 Year
  Sex: Male

DRUGS (2)
  1. TRACLEER [Suspect]
     Active Substance: BOSENTAN\BOSENTAN MONOHYDRATE
     Indication: PULMONARY ARTERIAL HYPERTENSION
     Dosage: UNK
     Route: 048
  2. SILDENAFIL. [Concomitant]
     Active Substance: SILDENAFIL

REACTIONS (14)
  - Fatigue [Unknown]
  - Chest discomfort [Unknown]
  - Dizziness [Unknown]
  - Musculoskeletal pain [Unknown]
  - Chest pain [Unknown]
  - Cough [Unknown]
  - Nocturnal dyspnoea [Unknown]
  - Benign lung neoplasm [Unknown]
  - Condition aggravated [Unknown]
  - Lymphadenopathy [Unknown]
  - Pulmonary arterial hypertension [Unknown]
  - Dyspnoea [Unknown]
  - Stress [Unknown]
  - Palpitations [Unknown]
